FAERS Safety Report 9335806 (Version 2)
Quarter: 2013Q3

REPORT INFORMATION
  Report Type: Spontaneous
  Country: US (occurrence: US)
  Receive Date: 20130606
  Receipt Date: 20130705
  Transmission Date: 20140515
  Serious: No
  Sender: FDA-Public Use
  Company Number: US-ASTRAZENECA-2013SE40021

PATIENT
  Age: 993 Month
  Sex: Female
  Weight: 68 kg

DRUGS (19)
  1. PULMICORT FLEXHALER [Suspect]
     Indication: WHEEZING
     Dosage: 90 MCG 1 PUFF BID
     Route: 055
     Dates: start: 20130521, end: 201305
  2. PULMICORT FLEXHALER [Suspect]
     Indication: WHEEZING
     Dosage: 90MCG 1 PUFF DAILY
     Route: 055
     Dates: start: 201305, end: 20130609
  3. TOPROL XL [Suspect]
     Indication: HYPERTENSION
     Route: 048
     Dates: start: 2010
  4. TOPROL XL [Suspect]
     Indication: HYPERTENSION
     Dosage: GENERIC, 50 MG DAILY
     Route: 048
  5. UNSPECIFIED INHALER [Concomitant]
     Route: 055
  6. MICARDIS [Concomitant]
     Indication: BLOOD PRESSURE ABNORMAL
     Dosage: 80/20 DAILY
     Route: 048
  7. NOVACZ [Concomitant]
     Indication: BLOOD PRESSURE ABNORMAL
     Route: 048
  8. NOVACZ [Concomitant]
     Indication: BLOOD PRESSURE ABNORMAL
     Route: 048
     Dates: start: 2010
  9. NOVACZ [Concomitant]
     Indication: BLOOD PRESSURE ABNORMAL
     Route: 048
  10. XALANTIN [Concomitant]
     Indication: GLAUCOMA
     Dosage: 0.01% DAILY
     Route: 061
  11. BLINK EYE DROPS OVER THE COUNTER [Concomitant]
     Indication: DRY EYE
     Dosage: DAILY
     Route: 061
  12. TONIC WATER [Concomitant]
     Indication: MUSCLE SPASMS
     Dosage: 4 OUNCES DAILY
     Route: 048
  13. MICARDIS HCT [Concomitant]
     Indication: HYPERTENSION
     Dosage: 80 25 DAILY
     Route: 048
     Dates: start: 2010
  14. BABY ASPIRIN [Concomitant]
     Route: 048
  15. LOVASTATIN [Concomitant]
     Indication: BLOOD CHOLESTEROL ABNORMAL
     Route: 048
     Dates: start: 2010
  16. ALBUTEROL [Concomitant]
     Dosage: 2 PUFFS PRN
     Route: 055
  17. XALATAN [Concomitant]
     Indication: GLAUCOMA
     Dosage: 1 GTT OU
     Route: 061
     Dates: start: 2011
  18. ESTRAC HORMONAL [Concomitant]
     Indication: BURNING SENSATION
  19. FLOUCINIDE [Concomitant]
     Indication: DRY SKIN
     Dosage: 0.5, PRN
     Route: 061

REACTIONS (21)
  - Chills [Unknown]
  - Body height decreased [Unknown]
  - Hypoacusis [Unknown]
  - Weight abnormal [Unknown]
  - Glaucoma [Unknown]
  - Cataract [Unknown]
  - Asthenia [Unknown]
  - Blood pressure increased [Unknown]
  - Malaise [Unknown]
  - Upper-airway cough syndrome [Unknown]
  - Oral candidiasis [Unknown]
  - Anxiety [Unknown]
  - Headache [Unknown]
  - Abdominal pain upper [Unknown]
  - Dizziness [Unknown]
  - Chest pain [Unknown]
  - Nausea [Unknown]
  - Wheezing [Unknown]
  - Weight increased [Unknown]
  - Intentional drug misuse [Unknown]
  - Intentional drug misuse [Unknown]
